FAERS Safety Report 20103453 (Version 2)
Quarter: 2021Q4

REPORT INFORMATION
  Report Type: Spontaneous
  Country: US (occurrence: US)
  Receive Date: 20211123
  Receipt Date: 20211125
  Transmission Date: 20220303
  Serious: Yes (Other)
  Sender: FDA-Public Use
  Company Number: US-PFIZER INC-2020429953

PATIENT
  Age: 65 Year
  Sex: Female

DRUGS (1)
  1. IBRANCE [Suspect]
     Active Substance: PALBOCICLIB
     Dosage: 125 MG
     Dates: start: 20170101

REACTIONS (5)
  - Oesophageal stenosis [Unknown]
  - Dysphagia [Unknown]
  - Onychoclasis [Unknown]
  - Product use complaint [Unknown]
  - Product dose omission issue [Unknown]
